FAERS Safety Report 7525268-4 (Version None)
Quarter: 2011Q2

REPORT INFORMATION
  Report Type: 
  Country: None (occurrence: None)
  Receive Date: 20110606
  Receipt Date: 20110601
  Transmission Date: 20111010
  Serious: No
  Sender: FDA-Public Use
  Company Number: US-TEVA-281864USA

PATIENT
  Sex: Female
  Weight: 90.8 kg

DRUGS (8)
  1. SIMVASTATIN [Concomitant]
  2. CLONIDINE [Concomitant]
  3. STALEVO 100 [Concomitant]
  4. AZILECT [Suspect]
     Indication: PARKINSON'S DISEASE
     Dosage: 1 MILLIGRAM;
     Route: 048
  5. ALISKIREN [Concomitant]
  6. AMANTADINE HCL [Concomitant]
  7. LOSARTAN POTASSIUM [Concomitant]
  8. CARVEDILOL [Concomitant]

REACTIONS (2)
  - ABDOMINAL PAIN UPPER [None]
  - DIARRHOEA [None]
